FAERS Safety Report 5354103-8 (Version None)
Quarter: 2007Q2

REPORT INFORMATION
  Report Type: 
  Country: None (occurrence: None)
  Receive Date: 20070521
  Receipt Date: 20070207
  Transmission Date: 20071010
  Serious: No
  Sender: FDA-Public Use
  Company Number: WAES 0702USA01075

PATIENT
  Age: 50 Year
  Sex: Male

DRUGS (8)
  1. JANUVIA [Suspect]
     Indication: DIABETES MELLITUS
     Dosage: 100 MG/DAILY/PO
     Route: 048
     Dates: start: 20061227, end: 20070103
  2. ABILIFY [Concomitant]
  3. ALLEGRA [Concomitant]
  4. ALTACE [Concomitant]
  5. AVANDAMET [Concomitant]
  6. BUSPAR [Concomitant]
  7. BYETTA [Concomitant]
  8. GLIMEPIRIDE [Concomitant]

REACTIONS (3)
  - BLOOD GLUCOSE INCREASED [None]
  - RASH [None]
  - URTICARIA [None]
